FAERS Safety Report 5611754-0 (Version None)
Quarter: 2008Q1

REPORT INFORMATION
  Report Type: 
  Country: None (occurrence: None)
  Receive Date: 20080128
  Receipt Date: 20061226
  Transmission Date: 20080703
  Serious: Yes (Other)
  Sender: FDA-Public Use
  Company Number: DSA_29178_2007

PATIENT
  Age: 76 Year
  Sex: Male

DRUGS (7)
  1. DILTIAZEM HYDROCHLORIDE                  (TIAZAC XC-DILTIAZEM HYDROCHL [Suspect]
     Indication: HYPERTENSION
     Dosage: (180 MG ORAL)
     Route: 048
     Dates: start: 20070101
  2. DILTIAZEM HYDROCHLORIDE (TIAZAC-LALTIAZEM HYDROCHLORIDE) [Suspect]
     Indication: HYPERTENSION
     Dosage: (180 MG 1X/MORNING ORAL)
     Route: 048
     Dates: start: 20061211
  3. XATRAL                   /00975301/ [Concomitant]
  4. ALLOPURINOL [Concomitant]
  5. DIOVAN                            /01319601/ [Concomitant]
  6. PRAVASTATIN [Concomitant]
  7. VIAGRA [Concomitant]

REACTIONS (4)
  - BLOOD PRESSURE FLUCTUATION [None]
  - DIZZINESS [None]
  - HEART RATE INCREASED [None]
  - MIDDLE INSOMNIA [None]
